FAERS Safety Report 8718248 (Version 3)
Quarter: 2012Q4

REPORT INFORMATION
  Report Type: 
  Country: US (occurrence: US)
  Receive Date: 20120810
  Receipt Date: 20121001
  Transmission Date: 20130627
  Serious: Yes (Hospitalization, Other)
  Sender: FDA-Public Use
  Company Number: US-ELI_LILLY_AND_COMPANY-US201208001043

PATIENT
  Age: 54 None
  Sex: Female

DRUGS (4)
  1. HUMATROPE [Suspect]
     Indication: BLOOD GROWTH HORMONE
     Dosage: 0.2 mg, UNK
     Dates: start: 2005
  2. HUMATROPE [Suspect]
     Dosage: 0.2 mg, qd
  3. BABY ASPIRIN [Concomitant]
     Dosage: 2 DF, UNK
  4. FLUOXETINE HYDROCHLORIDE [Concomitant]
     Dosage: 20 mg, UNK

REACTIONS (20)
  - Cerebrovascular accident [Unknown]
  - Cardiac disorder [Recovered/Resolved]
  - Panic disorder [Unknown]
  - Anxiety [Unknown]
  - Dyspnoea [Unknown]
  - Balance disorder [Not Recovered/Not Resolved]
  - Hearing impaired [Unknown]
  - Tinnitus [Unknown]
  - Incorrect storage of drug [Unknown]
  - Chills [Recovering/Resolving]
  - Insomnia [Recovering/Resolving]
  - Crying [Recovering/Resolving]
  - Emotional disorder [Recovering/Resolving]
  - Mental disorder [Unknown]
  - Drug dose omission [Unknown]
  - Insomnia [Unknown]
  - Nervousness [Unknown]
  - Feeling abnormal [Unknown]
  - Speech disorder [Unknown]
  - Hypoaesthesia [Unknown]
